FAERS Safety Report 24312757 (Version 1)
Quarter: 2024Q3

REPORT INFORMATION
  Report Type: Report from Study
  Country: US (occurrence: US)
  Receive Date: 20240912
  Receipt Date: 20240912
  Transmission Date: 20241017
  Serious: Yes (Hospitalization, Other)
  Sender: PFIZER
  Company Number: US-PFIZER INC-PV202400110121

PATIENT
  Age: 61 Year
  Sex: Female

DRUGS (4)
  1. INLYTA [Suspect]
     Active Substance: AXITINIB
     Indication: Renal cancer
     Dosage: 5 MG, 2X/DAY
     Route: 048
     Dates: start: 20240816, end: 20240903
  2. KEYTRUDA [Concomitant]
     Active Substance: PEMBROLIZUMAB
     Dosage: UNK
  3. CALCIUM [Concomitant]
     Active Substance: CALCIUM
     Dosage: UNK
  4. MAGNESIUM [Concomitant]
     Active Substance: MAGNESIUM
     Dosage: UNK

REACTIONS (10)
  - Neuropathy peripheral [Recovered/Resolved]
  - Gait inability [Recovered/Resolved]
  - Fatigue [Unknown]
  - Asthenia [Unknown]
  - Sciatica [Unknown]
  - Delirium [Recovered/Resolved]
  - Muscle spasms [Recovered/Resolved]
  - Stomatitis [Not Recovered/Not Resolved]
  - Constipation [Recovered/Resolved]
  - COVID-19 [Unknown]

NARRATIVE: CASE EVENT DATE: 20240801
